FAERS Safety Report 9160790 (Version 2)
Quarter: 2013Q1

REPORT INFORMATION
  Report Type: Spontaneous
  Country: AU (occurrence: AU)
  Receive Date: 20130313
  Receipt Date: 20130326
  Transmission Date: 20140127
  Serious: Yes (Life-Threatening)
  Sender: FDA-Public Use
  Company Number: AU-B.I. PHARMACEUTICALS,INC./RIDGEFIELD-2013-AU-00278AU

PATIENT
  Age: 48 Year
  Sex: Male
  Weight: 72 kg

DRUGS (3)
  1. PRADAXA [Suspect]
     Indication: ATRIAL FIBRILLATION
     Dosage: 300 MG
     Dates: start: 20130212, end: 20130215
  2. QVAR [Concomitant]
     Dosage: 2 PUFFS BD
     Route: 055
  3. SERETIDE [Concomitant]
     Route: 055

REACTIONS (9)
  - Anti-neutrophil cytoplasmic antibody positive vasculitis [Not Recovered/Not Resolved]
  - Allergic granulomatous angiitis [Not Recovered/Not Resolved]
  - Generalised oedema [Unknown]
  - Arthralgia [Unknown]
  - Haemoptysis [Unknown]
  - Renal failure [Unknown]
  - Multi-organ disorder [Unknown]
  - Myocarditis [Unknown]
  - Pericarditis [Unknown]
